FAERS Safety Report 6371354-4 (Version None)
Quarter: 2009Q3

REPORT INFORMATION
  Report Type: 
  Country: None (occurrence: None)
  Receive Date: 20090923
  Receipt Date: 20090917
  Transmission Date: 20100115
  Serious: Yes (Death, Hospitalization)
  Sender: FDA-Public Use
  Company Number: US-GILEAD-2009-0023938

PATIENT
  Sex: Female
  Weight: 109.41 kg

DRUGS (12)
  1. LETAIRIS [Suspect]
     Indication: PULMONARY ARTERIAL HYPERTENSION
     Route: 048
     Dates: start: 20080513, end: 20090701
  2. OXYGEN [Concomitant]
     Route: 055
  3. REVATIO [Concomitant]
  4. WARFARIN SODIUM [Concomitant]
  5. METOLAZONE [Concomitant]
  6. LASIX [Concomitant]
  7. OXYCODONE [Concomitant]
  8. OXYCODONE HCL [Concomitant]
  9. TRAZODONE [Concomitant]
  10. PAXIL [Concomitant]
  11. K-DUR [Concomitant]
  12. ALLEGRA [Concomitant]

REACTIONS (2)
  - BLOOD POTASSIUM INCREASED [None]
  - RENAL FAILURE [None]
